FAERS Safety Report 12304505 (Version 2)
Quarter: 2016Q2

REPORT INFORMATION
  Report Type: Spontaneous
  Country: CA (occurrence: CA)
  Receive Date: 20160426
  Receipt Date: 20160428
  Transmission Date: 20160815
  Serious: Yes (Death)
  Sender: FDA-Public Use
  Company Number: CA-BAXTER-2016BAX019280

PATIENT
  Age: 59 Year
  Sex: Female

DRUGS (8)
  1. PRISMASOL 4 [Suspect]
     Active Substance: ANHYDROUS DEXTROSE\LACTIC ACID\MAGNESIUM CHLORIDE\POTASSIUM CHLORIDE\SODIUM BICARBONATE\SODIUM CHLORIDE
     Indication: ACUTE KIDNEY INJURY
     Route: 010
     Dates: start: 20160326
  2. POTASSIUM [Suspect]
     Active Substance: POTASSIUM
     Indication: SEPSIS
  3. PRISMASOL 0 [Suspect]
     Active Substance: ANHYDROUS DEXTROSE\LACTIC ACID\MAGNESIUM CHLORIDE\POTASSIUM CHLORIDE\SODIUM BICARBONATE\SODIUM CHLORIDE
     Indication: ACUTE KIDNEY INJURY
     Route: 010
     Dates: start: 20160326
  4. POTASSIUM [Suspect]
     Active Substance: POTASSIUM
     Indication: ACUTE KIDNEY INJURY
     Route: 010
  5. PRISMASOL 4 [Suspect]
     Active Substance: ANHYDROUS DEXTROSE\LACTIC ACID\MAGNESIUM CHLORIDE\POTASSIUM CHLORIDE\SODIUM BICARBONATE\SODIUM CHLORIDE
     Indication: SEPSIS
  6. PRISMASOL 0 [Suspect]
     Active Substance: ANHYDROUS DEXTROSE\LACTIC ACID\MAGNESIUM CHLORIDE\POTASSIUM CHLORIDE\SODIUM BICARBONATE\SODIUM CHLORIDE
     Indication: SEPSIS
  7. PRISM0CAL [Suspect]
     Active Substance: CARBONATE ION\LACTIC ACID\MAGNESIUM CATION\SODIUM CHLORIDE
     Indication: ACUTE KIDNEY INJURY
     Route: 010
  8. PRISM0CAL [Suspect]
     Active Substance: CARBONATE ION\LACTIC ACID\MAGNESIUM CATION\SODIUM CHLORIDE
     Indication: SEPSIS

REACTIONS (4)
  - Death [Fatal]
  - Blood potassium increased [Unknown]
  - Drug dispensing error [Unknown]
  - Wrong drug administered [Unknown]

NARRATIVE: CASE EVENT DATE: 20160326
